FAERS Safety Report 10418306 (Version 1)
Quarter: 2014Q2

REPORT INFORMATION
  Report Type: Spontaneous
  Country: US (occurrence: None)
  Receive Date: 20140613
  Receipt Date: 20140613
  Transmission Date: 20141212
  Serious: No
  Sender: FDA-Public Use
  Company Number: 1363038

PATIENT
  Age: 55 Year
  Sex: Female

DRUGS (6)
  1. ZELBORAF (VEMURAFENIB) (TABLET) [Suspect]
     Indication: MALIGNANT MELANOMA
     Dosage: 720 MG TWICE A DAY (240 MG, 3 IN 12 HR), ORAL
     Dates: start: 201308
  2. CELEXA (UNITED STATES) (CITALOPRAM HYDROBROMIDE) [Concomitant]
  3. BUSPIRONE (BUSPIRONE HYDROCHLORIDE) [Concomitant]
  4. OXYCODONE [Concomitant]
  5. MORPHINE ER (MORPHINE SULFATE) [Concomitant]
  6. IBUPROFEN [Concomitant]

REACTIONS (4)
  - Skin papilloma [None]
  - Dry skin [None]
  - Hypersensitivity [None]
  - Dyspnoea [None]
